FAERS Safety Report 4725159-8 (Version None)
Quarter: 2005Q3

REPORT INFORMATION
  Report Type: 
  Country: None (occurrence: None)
  Receive Date: 20050725
  Receipt Date: 20050711
  Transmission Date: 20060218
  Serious: Yes (Hospitalization, Other)
  Sender: FDA-Public Use
  Company Number: 2005071187

PATIENT
  Age: 84 Year
  Sex: Male

DRUGS (14)
  1. NEURONTIN [Suspect]
     Indication: EPILEPSY
     Dosage: 400 MG (200 MG, 2 IN 1 D), ORAL
     Route: 048
     Dates: start: 20030601
  2. DILANTIN [Suspect]
     Indication: ILL-DEFINED DISORDER
     Dosage: 360 MG (230MG AM, 130MG PM), ORAL
     Route: 048
  3. ZOCOR [Concomitant]
  4. ASPIRIN [Concomitant]
  5. POTASSIUM CHLORIDE [Concomitant]
  6. MULTIVITAMIN [Concomitant]
  7. ALDACTONE [Concomitant]
  8. PLAVIX [Concomitant]
  9. LASIX [Concomitant]
  10. PRILOSEC [Concomitant]
  11. TAMSULOSIN HCL [Concomitant]
  12. TOPROL (METOPROLOL) [Concomitant]
  13. METRONIDAZOLE [Concomitant]
  14. ALL OTHER THERAPEUTIC PRODUCTS(ALL OTHER THERAPEUTIC PRODUCTS) [Concomitant]

REACTIONS (11)
  - ANTICONVULSANT DRUG LEVEL DECREASED [None]
  - BLOOD POTASSIUM DECREASED [None]
  - CLOSTRIDIUM DIFFICILE TOXIN TEST POSITIVE [None]
  - DIARRHOEA [None]
  - DRUG INEFFECTIVE [None]
  - GRAND MAL CONVULSION [None]
  - INCORRECT DOSE ADMINISTERED [None]
  - MEDICATION ERROR [None]
  - PHARMACEUTICAL PRODUCT COMPLAINT [None]
  - STATUS EPILEPTICUS [None]
  - TREMOR [None]
